FAERS Safety Report 6755484-0 (Version None)
Quarter: 2010Q2

REPORT INFORMATION
  Report Type: 
  Country: None (occurrence: None)
  Receive Date: 20100524
  Receipt Date: 20100324
  Transmission Date: 20101027
  Serious: No
  Sender: FDA-Public Use
  Company Number: 008036

PATIENT
  Sex: Male

DRUGS (1)
  1. CIMZIA [Suspect]
     Indication: CROHN'S DISEASE
     Dosage: (400 MG MONTHLY SUBCUTANEOUS)
     Route: 058
     Dates: start: 20090107

REACTIONS (5)
  - ABDOMINAL DISCOMFORT [None]
  - FATIGUE [None]
  - FREQUENT BOWEL MOVEMENTS [None]
  - HAEMATOCHEZIA [None]
  - INSOMNIA [None]
